FAERS Safety Report 16166160 (Version 5)
Quarter: 2019Q2

REPORT INFORMATION
  Report Type: Report from Study
  Country: IT (occurrence: IT)
  Receive Date: 20190406
  Receipt Date: 20190604
  Transmission Date: 20190711
  Serious: Yes (Hospitalization, Other)
  Sender: FDA-Public Use
  Company Number: IT-ACCORD-118688

PATIENT
  Age: 11 Year
  Sex: Female
  Weight: 60 kg

DRUGS (24)
  1. DAUNOBLASTIN [Suspect]
     Active Substance: DAUNORUBICIN HYDROCHLORIDE
     Indication: ACUTE LYMPHOCYTIC LEUKAEMIA
     Route: 042
     Dates: start: 20180917, end: 20181001
  2. DIFLUCAN [Concomitant]
     Active Substance: FLUCONAZOLE
  3. VINCRISTINE [Suspect]
     Active Substance: VINCRISTINE
     Indication: ACUTE LYMPHOCYTIC LEUKAEMIA
     Route: 042
     Dates: start: 20180917, end: 20181001
  4. MYCOSTATIN [Concomitant]
     Active Substance: NYSTATIN
     Indication: PREMEDICATION
     Route: 048
  5. GABAPENTIN. [Concomitant]
     Active Substance: GABAPENTIN
     Route: 048
  6. DECADRON [Concomitant]
     Active Substance: DEXAMETHASONE
     Dosage: 15.4 MG ALSO RECEIVED
     Route: 048
  7. PAXABEL [Concomitant]
     Route: 048
  8. BACTRIM [Concomitant]
     Active Substance: SULFAMETHOXAZOLE\TRIMETHOPRIM
     Route: 048
  9. MAALOX ANTACID [Concomitant]
     Active Substance: ALUMINUM HYDROXIDE\DIMETHICONE\MAGNESIUM HYDROXIDE
     Route: 048
  10. METHOTREXATE. [Suspect]
     Active Substance: METHOTREXATE
     Indication: ACUTE LYMPHOCYTIC LEUKAEMIA
     Dosage: DATE OF LAST ADMINISTRATION 24-SEP-2018
     Route: 042
     Dates: start: 20180910
  11. LASIX [Concomitant]
     Active Substance: FUROSEMIDE
     Indication: ANAESTHETIC PREMEDICATION
  12. URBASON [Concomitant]
     Active Substance: METHYLPREDNISOLONE
     Route: 042
     Dates: start: 20180910, end: 20180924
  13. ANTRA [Concomitant]
     Active Substance: OMEPRAZOLE
     Indication: PREMEDICATION
     Dosage: ALSO RECEIVED BY IV ROUTE
     Route: 048
  14. CIPROXIN [Concomitant]
     Active Substance: CIPROFLOXACIN
     Route: 048
  15. ACICLOVIR [Concomitant]
     Active Substance: ACYCLOVIR
  16. ANTITHROMBIN III [Concomitant]
     Active Substance: ANTITHROMBIN III HUMAN
     Route: 042
  17. NICETILE [Concomitant]
     Active Substance: ACETYLCARNITINE HYDROCHLORIDE
  18. PEGASPARGASE [Suspect]
     Active Substance: PEGASPARGASE
     Indication: ACUTE LYMPHOCYTIC LEUKAEMIA
     Dosage: DATE OF LAST ADMINISTRATION 04-OCT-2018
     Route: 042
     Dates: start: 20180920
  19. DEURSIL [Concomitant]
     Active Substance: URSODIOL
     Route: 048
  20. MOVICOL [Concomitant]
     Active Substance: POLYETHYLENE GLYCOL 3350\POTASSIUM CHLORIDE\SODIUM BICARBONATE\SODIUM CHLORIDE
     Route: 048
  21. LASIX [Concomitant]
     Active Substance: FUROSEMIDE
     Dosage: 15 MG ALSO RECEIVED
     Route: 042
  22. ZOFRAN [Concomitant]
     Active Substance: ONDANSETRON HYDROCHLORIDE
     Route: 042
  23. AUGMENTIN [Concomitant]
     Active Substance: AMOXICILLIN\CLAVULANATE POTASSIUM
     Route: 048
  24. PERFALGAN [Concomitant]
     Active Substance: ACETAMINOPHEN
     Indication: PAIN IN EXTREMITY
     Route: 042

REACTIONS (20)
  - Leukopenia [Recovered/Resolved]
  - Diarrhoea [Recovered/Resolved]
  - Abdominal pain [Recovered/Resolved]
  - Asthenia [Recovering/Resolving]
  - Abdominal pain upper [Recovering/Resolving]
  - Constipation [Recovering/Resolving]
  - Oedema peripheral [Recovered/Resolved]
  - Erythropenia [Recovering/Resolving]
  - Pneumonitis [Not Recovered/Not Resolved]
  - Oropharyngeal pain [Not Recovered/Not Resolved]
  - Pain in extremity [Recovering/Resolving]
  - Antithrombin III decreased [Recovering/Resolving]
  - Hyperbilirubinaemia [Recovering/Resolving]
  - Neuropathy peripheral [Not Recovered/Not Resolved]
  - Oral pain [Recovered/Resolved]
  - Pyrexia [Recovering/Resolving]
  - Gait disturbance [Not Recovered/Not Resolved]
  - Neutropenia [Recovered/Resolved]
  - Odynophagia [Recovered/Resolved]
  - Limb immobilisation [Not Recovered/Not Resolved]

NARRATIVE: CASE EVENT DATE: 20180915
